FAERS Safety Report 6640708-0 (Version None)
Quarter: 2010Q1

REPORT INFORMATION
  Report Type: 
  Country: None (occurrence: None)
  Receive Date: 20100318
  Receipt Date: 20100305
  Transmission Date: 20100710
  Serious: Yes (Hospitalization)
  Sender: FDA-Public Use
  Company Number: US-ELI_LILLY_AND_COMPANY-US200909005097

PATIENT
  Sex: Female
  Weight: 245 kg

DRUGS (9)
  1. BYETTA [Suspect]
     Dosage: UNK, UNKNOWN
     Dates: start: 20070710, end: 20071016
  2. GLUCOPHAGE [Concomitant]
  3. NOVOLOG [Concomitant]
  4. LANTUS [Concomitant]
  5. ALBUTEROL [Concomitant]
  6. ALTACE [Concomitant]
  7. ADVAIR DISKUS 100/50 [Concomitant]
  8. VALIUM [Concomitant]
  9. OXYGEN [Concomitant]

REACTIONS (8)
  - CONSTIPATION [None]
  - DIARRHOEA [None]
  - FAECALOMA [None]
  - OFF LABEL USE [None]
  - PANCREATITIS [None]
  - STAPHYLOCOCCAL INFECTION [None]
  - VAGINAL DISCHARGE [None]
  - VULVOVAGINAL DISCOMFORT [None]
